FAERS Safety Report 7926855-1 (Version None)
Quarter: 2011Q4

REPORT INFORMATION
  Report Type: 
  Country: None (occurrence: None)
  Receive Date: 20111118
  Receipt Date: 20111115
  Transmission Date: 20120403
  Serious: Yes (Hospitalization, Other)
  Sender: FDA-Public Use
  Company Number: US-PFIZER INC-2011279907

PATIENT
  Sex: Female
  Weight: 79.365 kg

DRUGS (7)
  1. LYRICA [Suspect]
     Indication: FIBROMYALGIA
  2. LYRICA [Suspect]
     Indication: BACK PAIN
  3. LYRICA [Suspect]
     Indication: PSORIASIS
  4. CELEBREX [Concomitant]
     Indication: ARTHRITIS
     Dosage: 200 MG, UNK
     Route: 048
  5. LYRICA [Suspect]
     Indication: NEURALGIA
     Dosage: 100 MG, 2X/DAY
     Route: 048
     Dates: start: 20100101, end: 20110101
  6. LYRICA [Suspect]
     Indication: BACK DISORDER
  7. LYRICA [Suspect]
     Indication: OSTEOPOROSIS

REACTIONS (7)
  - IMPAIRED DRIVING ABILITY [None]
  - BALANCE DISORDER [None]
  - PULMONARY EMBOLISM [None]
  - DRUG INTOLERANCE [None]
  - DRUG HYPERSENSITIVITY [None]
  - SLOW SPEECH [None]
  - MEMORY IMPAIRMENT [None]
